FAERS Safety Report 12935615 (Version 1)
Quarter: 2016Q4

REPORT INFORMATION
  Report Type: Spontaneous
  Country: CN (occurrence: CN)
  Receive Date: 20161114
  Receipt Date: 20161114
  Transmission Date: 20170207
  Serious: Yes (Death, Other)
  Sender: FDA-Public Use
  Company Number: CN-PAR PHARMACEUTICAL COMPANIES-2016SCPR016085

PATIENT

DRUGS (6)
  1. LUMINAL                            /00023201/ [Concomitant]
     Active Substance: PHENOBARBITAL SODIUM
     Indication: PRODUCT USED FOR UNKNOWN INDICATION
     Dosage: 30 MG, UNKNOWN
     Route: 030
  2. MIDAZOLAM [Concomitant]
     Active Substance: MIDAZOLAM\MIDAZOLAM HYDROCHLORIDE
     Indication: ANAESTHESIA
     Dosage: 3 MG, UNKNOWN
     Route: 042
  3. KETALAR [Suspect]
     Active Substance: KETAMINE HYDROCHLORIDE
     Indication: ANAESTHESIA
     Dosage: 50 MG, UNKNOWN
     Route: 042
     Dates: start: 20160712, end: 20160712
  4. KETALAR [Suspect]
     Active Substance: KETAMINE HYDROCHLORIDE
     Dosage: 100 MG, UNKNOWN
     Route: 042
     Dates: start: 20160712, end: 20160712
  5. KETALAR [Suspect]
     Active Substance: KETAMINE HYDROCHLORIDE
     Dosage: 100 MG, UNKNOWN
     Route: 042
     Dates: start: 20160712, end: 20160712
  6. ATROPINE. [Concomitant]
     Active Substance: ATROPINE
     Indication: PRODUCT USED FOR UNKNOWN INDICATION
     Dosage: 0.2 MG, UNKNOWN
     Route: 030

REACTIONS (2)
  - Overdose [Unknown]
  - Hyperthermia malignant [Fatal]

NARRATIVE: CASE EVENT DATE: 200007
